FAERS Safety Report 6445605-1 (Version None)
Quarter: 2009Q4

REPORT INFORMATION
  Report Type: 
  Country: None (occurrence: None)
  Receive Date: 20091118
  Receipt Date: 20091118
  Transmission Date: 20100525
  Serious: Yes (Other)
  Sender: FDA-Public Use
  Company Number: None

PATIENT
  Age: 55 Year
  Sex: Female
  Weight: 136.0791 kg

DRUGS (1)
  1. MICARDIS [Suspect]
     Dosage: 80 MG
     Dates: start: 20060101, end: 20090101

REACTIONS (2)
  - MUSCULOSKELETAL PAIN [None]
  - X-RAY ABNORMAL [None]
